FAERS Safety Report 5130768-0 (Version None)
Quarter: 2006Q4

REPORT INFORMATION
  Report Type: 
  Country: None (occurrence: None)
  Receive Date: 20061019
  Receipt Date: 20050624
  Transmission Date: 20070319
  Serious: Yes (Other)
  Sender: FDA-Public Use
  Company Number: PHBS2005BE09251

PATIENT
  Age: 62 Year
  Sex: Male

DRUGS (6)
  1. ZOMETA [Suspect]
     Indication: MULTIPLE MYELOMA
     Dosage: UNK, UNK
     Route: 042
     Dates: start: 20030217, end: 20050512
  2. VINCRISTINE + ADRIAMYCIN + DEXAMETHASONE [Concomitant]
     Route: 065
     Dates: start: 20030217, end: 20030512
  3. CYCLOPHOSPHAMIDE [Concomitant]
     Dosage: HIGH DOSE
     Route: 065
     Dates: start: 20030627
  4. MEDROL [Concomitant]
     Indication: CHRONIC SINUSITIS
     Dosage: 16 MG/D
     Route: 065
     Dates: start: 20041216
  5. HEMATOPOETIC PROGENITOR CELLS HUMAN [Concomitant]
     Dosage: STEM CELL COLLECTION
     Route: 065
     Dates: start: 20030627
  6. HEMATOPOETIC PROGENITOR CELLS HUMAN [Concomitant]
     Dosage: AUTOLOGOUS STEM CELL TRANSPLANTATION
     Route: 065
     Dates: start: 20030725

REACTIONS (7)
  - GINGIVAL ATROPHY [None]
  - OSTEONECROSIS [None]
  - PURULENT DISCHARGE [None]
  - RASH ERYTHEMATOUS [None]
  - TOOTH ABSCESS [None]
  - TOOTH INFECTION [None]
  - TOOTHACHE [None]
